FAERS Safety Report 18178722 (Version 1)
Quarter: 2020Q3

REPORT INFORMATION
  Report Type: Other
  Country: GB (occurrence: GB)
  Receive Date: 20200821
  Receipt Date: 20200821
  Transmission Date: 20201103
  Serious: Yes (Other)
  Sender: FDA-Public Use
  Company Number: GB-ROCHE-2604812

PATIENT
  Sex: Female

DRUGS (2)
  1. HERCEPTIN [Suspect]
     Active Substance: TRASTUZUMAB
     Indication: HER2 POSITIVE BREAST CANCER
     Route: 065
  2. PERJETA [Suspect]
     Active Substance: PERTUZUMAB
     Indication: HER2 POSITIVE BREAST CANCER
     Route: 065

REACTIONS (8)
  - Epistaxis [Unknown]
  - Drug ineffective [Unknown]
  - Fatigue [Recovering/Resolving]
  - Infusion site bruising [Recovering/Resolving]
  - Metastatic neoplasm [Recovered/Resolved]
  - Infusion related reaction [Recovered/Resolved]
  - Rhinorrhoea [Unknown]
  - Infusion site pain [Recovering/Resolving]
